FAERS Safety Report 10239556 (Version 1)
Quarter: 2014Q2

REPORT INFORMATION
  Report Type: Spontaneous
  Country: US (occurrence: US)
  Receive Date: 20140616
  Receipt Date: 20140616
  Transmission Date: 20141212
  Serious: Yes (Other)
  Sender: FDA-Public Use
  Company Number: US-TEVA-488040USA

PATIENT
  Age: 71 Year
  Sex: Male

DRUGS (6)
  1. DOXORUBICIN [Suspect]
     Indication: B-CELL LYMPHOMA STAGE IV
     Dosage: 6 CYCLES
     Route: 065
  2. VINCRISTINE [Suspect]
     Indication: B-CELL LYMPHOMA STAGE IV
     Dosage: 6 CYCLES
     Route: 065
  3. CYCLOPHOSPHAMIDE [Suspect]
     Indication: B-CELL LYMPHOMA STAGE IV
     Dosage: 6 CYCLES
     Route: 065
  4. PREDNISONE [Suspect]
     Indication: B-CELL LYMPHOMA STAGE IV
     Dosage: 6 CYCLES
     Route: 065
  5. ROSUVASTATIN [Concomitant]
     Indication: CORONARY ARTERY DISEASE
     Route: 065
  6. ASPIRIN [Concomitant]
     Indication: CORONARY ARTERY DISEASE
     Route: 065

REACTIONS (1)
  - Peripheral T-cell lymphoma unspecified [Recovering/Resolving]
